FAERS Safety Report 9601794 (Version 3)
Quarter: 2013Q4

REPORT INFORMATION
  Report Type: Spontaneous
  Country: GB (occurrence: None)
  Receive Date: 20131002
  Receipt Date: 20131211
  Transmission Date: 20140711
  Serious: Yes (Death, Disabling)
  Sender: FDA-Public Use
  Company Number: AUR-APL-2013-08038

PATIENT
  Age: 64 Year
  Sex: Male

DRUGS (6)
  1. SIMVASTATIN [Suspect]
     Indication: PRODUCT USED FOR UNKNOWN INDICATION
     Route: 048
  2. AMITRIPTYLINE (AMITRIPTYLINE) [Concomitant]
  3. GENOTROPIN ( SOMATROPIN) [Concomitant]
  4. HYDROCORTISONE (HYDROCORTISONE) [Concomitant]
  5. LEVOTHYROXINE (LEVOTHYROXINE) [Concomitant]
  6. PARACETAMOL (PATACETAMOL) [Concomitant]

REACTIONS (3)
  - Pulmonary fibrosis [None]
  - Pneumonia [None]
  - Acute myocardial infarction [None]
